FAERS Safety Report 6347490-5 (Version None)
Quarter: 2009Q3

REPORT INFORMATION
  Report Type: 
  Country: None (occurrence: None)
  Receive Date: 20090910
  Receipt Date: 20090901
  Transmission Date: 20100115
  Serious: Yes (Hospitalization)
  Sender: FDA-Public Use
  Company Number: US-ELI_LILLY_AND_COMPANY-US200709005061

PATIENT
  Sex: Female

DRUGS (9)
  1. BYETTA [Suspect]
     Indication: TYPE 2 DIABETES MELLITUS
     Dosage: 5 UG, UNKNOWN
     Route: 058
     Dates: start: 20050915, end: 20051016
  2. BYETTA [Suspect]
     Dosage: 10 U, 2/D
     Route: 058
     Dates: start: 20051017
  3. LANTUS [Concomitant]
     Indication: TYPE 2 DIABETES MELLITUS
     Dosage: 50 U, EACH MORNING
     Route: 058
  4. LANTUS [Concomitant]
     Dosage: 54 U, EACH EVENING
     Route: 058
  5. LANTUS [Concomitant]
     Dosage: 35 U, EACH EVENING
  6. METFORMIN HCL [Concomitant]
     Indication: TYPE 2 DIABETES MELLITUS
     Dosage: 1000 MG, EACH MORNING
  7. METFORMIN HCL [Concomitant]
     Dosage: 1500 MG, EACH EVENING
  8. STARLIX [Concomitant]
     Indication: TYPE 2 DIABETES MELLITUS
     Dates: end: 20060101
  9. SYNTHROID [Concomitant]
     Indication: HYPOTHYROIDISM
     Dosage: 150 UG, DAILY (1/D)

REACTIONS (4)
  - AUTOIMMUNE THYROIDITIS [None]
  - BLOOD GLUCOSE INCREASED [None]
  - INJECTION SITE HAEMORRHAGE [None]
  - THYROID NEOPLASM [None]
